FAERS Safety Report 9735155 (Version 9)
Quarter: 2015Q1

REPORT INFORMATION
  Report Type: Report from Study
  Country: FR (occurrence: FR)
  Receive Date: 20131206
  Receipt Date: 20150223
  Transmission Date: 20150721
  Serious: Yes (Other)
  Sender: FDA-Public Use
  Company Number: FR-B.I. PHARMACEUTICALS,INC./RIDGEFIELD-2013-FF-00549FF

PATIENT
  Age: 51 Year
  Sex: Male
  Weight: 50 kg

DRUGS (11)
  1. BIBW 2992 [Suspect]
     Active Substance: AFATINIB
     Dosage: 20 MG
     Route: 048
     Dates: start: 20130214, end: 20130227
  2. SKENAN [Concomitant]
     Active Substance: MORPHINE SULFATE
     Indication: TUMOUR PAIN
     Dosage: 80 MG
     Route: 048
  3. BIBW 2992 [Suspect]
     Active Substance: AFATINIB
     Indication: PANCREATIC CARCINOMA
     Dosage: 30 MG
     Route: 048
     Dates: start: 20130202, end: 20130208
  4. TRIMEBUTINE [Concomitant]
     Active Substance: TRIMEBUTINE
     Indication: PAIN PROPHYLAXIS
     Dosage: 3 ANZ
     Route: 048
  5. PARACETAMOL [Concomitant]
     Active Substance: ACETAMINOPHEN
     Indication: TUMOUR PAIN
     Dosage: 2 G
     Route: 048
  6. LOPERAMIDE [Concomitant]
     Active Substance: LOPERAMIDE
     Indication: PRODUCT USED FOR UNKNOWN INDICATION
     Route: 065
  7. DOCETAXEL. [Suspect]
     Active Substance: DOCETAXEL
     Indication: PANCREATIC CARCINOMA
     Dosage: STRENGTH AND TOTAL DAILY DOSE: 75 MG/M2
     Route: 042
     Dates: start: 20130201
  8. CLOPIDOGREL [Concomitant]
     Active Substance: CLOPIDOGREL BISULFATE
     Indication: PROPHYLAXIS
     Dosage: 2 ANZ
     Route: 048
  9. ACTISKENAN [Concomitant]
     Active Substance: MORPHINE SULFATE
     Indication: TUMOUR PAIN
     Route: 048
  10. ESOMEPRAZOLE [Concomitant]
     Active Substance: ESOMEPRAZOLE
     Indication: PROPHYLAXIS
     Dosage: 20 MG
     Route: 048
  11. CLOPIDOGREL [Concomitant]
     Active Substance: CLOPIDOGREL BISULFATE
     Dosage: 1 ANZ
     Route: 048

REACTIONS (3)
  - Asthenia [Not Recovered/Not Resolved]
  - Neutropenia [Recovered/Resolved]
  - Decreased appetite [Not Recovered/Not Resolved]

NARRATIVE: CASE EVENT DATE: 20130203
